FAERS Safety Report 19827067 (Version 1)
Quarter: 2021Q3

REPORT INFORMATION
  Report Type: Spontaneous
  Country: CO (occurrence: CO)
  Receive Date: 20210914
  Receipt Date: 20210914
  Transmission Date: 20211014
  Serious: No
  Sender: FDA-Public Use
  Company Number: CO-AMGEN-COLSP2021137838

PATIENT
  Age: 62 Year
  Sex: Male
  Weight: 65 kg

DRUGS (5)
  1. NEULASTIM [Suspect]
     Active Substance: PEGFILGRASTIM
     Indication: TESTIS CANCER
     Dosage: 6 MILLIGRAM, Q3WK (DAYS 1, 2, 3, EACH 21 DAYS)
     Route: 058
  2. NEULASTIM [Suspect]
     Active Substance: PEGFILGRASTIM
     Indication: RETROPERITONEAL CANCER
  3. DOXORUBICIN [Concomitant]
     Active Substance: DOXORUBICIN
     Dosage: 35 MILLIGRAM  (0.5 H)
     Route: 042
     Dates: start: 20210827
  4. IFOSFAMIDA [Concomitant]
     Active Substance: IFOSFAMIDE
     Dosage: 4250 MILLIGRAM  (2H)
     Route: 042
     Dates: start: 20210827
  5. MESNA. [Concomitant]
     Active Substance: MESNA
     Dosage: 4250 MILLIGRAM  (2H)
     Route: 042
     Dates: start: 20210827

REACTIONS (1)
  - Device malfunction [Unknown]

NARRATIVE: CASE EVENT DATE: 20210828
